FAERS Safety Report 5031223-9 (Version None)
Quarter: 2006Q2

REPORT INFORMATION
  Report Type: 
  Country: None (occurrence: None)
  Receive Date: 20060621
  Receipt Date: 20060417
  Transmission Date: 20061013
  Serious: No
  Sender: FDA-Public Use
  Company Number: US-GLAXOSMITHKLINE-A0601935A

PATIENT
  Age: 45 Year
  Sex: Male

DRUGS (2)
  1. AVANDARYL [Suspect]
     Dosage: 1TAB PER DAY
     Route: 048
     Dates: start: 20060412
  2. NO CONCURRENT MEDICATION [Concomitant]

REACTIONS (1)
  - VISION BLURRED [None]
